FAERS Safety Report 6642618-1 (Version None)
Quarter: 2010Q1

REPORT INFORMATION
  Report Type: 
  Country: None (occurrence: None)
  Receive Date: 20100319
  Receipt Date: 20100309
  Transmission Date: 20100710
  Serious: Yes (Life-Threatening, Hospitalization, Disabling, Other)
  Sender: FDA-Public Use
  Company Number: US-MERCK-96082397

PATIENT
  Age: 72 Year
  Sex: Female

DRUGS (12)
  1. FOSAMAX [Suspect]
     Indication: OSTEOPOROSIS
     Route: 048
     Dates: start: 19960101, end: 19960101
  2. FOSAMAX [Suspect]
     Route: 048
     Dates: start: 19970301
  3. FOSAMAX [Suspect]
     Route: 048
     Dates: start: 19951201, end: 19960101
  4. FOSAMAX [Suspect]
     Route: 048
     Dates: end: 20060424
  5. FOSAMAX [Suspect]
     Route: 048
     Dates: end: 20090428
  6. SYNTHROID [Concomitant]
     Route: 048
  7. ZOCOR [Concomitant]
     Route: 048
  8. NABUMETONE [Concomitant]
     Route: 065
  9. ZEBETA [Concomitant]
     Route: 065
  10. CELEBREX [Concomitant]
     Route: 065
  11. LASIX [Concomitant]
     Route: 065
  12. PROTONIX [Concomitant]
     Route: 065

REACTIONS (6)
  - ABDOMINAL DISTENSION [None]
  - CARDIAC FAILURE CONGESTIVE [None]
  - FEMUR FRACTURE [None]
  - FOREIGN BODY [None]
  - GASTROOESOPHAGEAL REFLUX DISEASE [None]
  - JAW DISORDER [None]
